FAERS Safety Report 4555682-0 (Version None)
Quarter: 2005Q1

REPORT INFORMATION
  Report Type: 
  Country: None (occurrence: None)
  Receive Date: 20050118
  Receipt Date: 20050106
  Transmission Date: 20050727
  Serious: Yes (Hospitalization)
  Sender: FDA-Public Use
  Company Number: 2005006745

PATIENT
  Sex: Male
  Weight: 72.5755 kg

DRUGS (1)
  1. ROLAIDS [Suspect]
     Indication: DYSPEPSIA
     Dosage: 1-2 TABS QD, ORAL
     Route: 048
     Dates: start: 20000101

REACTIONS (2)
  - CARDIAC DISORDER [None]
  - CHEST PAIN [None]
